FAERS Safety Report 5728637-8 (Version None)
Quarter: 2008Q2

REPORT INFORMATION
  Report Type: 
  Country: None (occurrence: None)
  Receive Date: 20080506
  Receipt Date: 20080425
  Transmission Date: 20081010
  Serious: Yes (Life-Threatening, Hospitalization, Other)
  Sender: FDA-Public Use
  Company Number: DE-JNJFOC-20080205946

PATIENT
  Sex: Female
  Weight: 58.5 kg

DRUGS (8)
  1. DURAGESIC-100 [Suspect]
     Indication: PAIN
     Route: 062
  2. PANTOPRAZOLE SODIUM [Concomitant]
  3. FUROSEMIDE [Concomitant]
  4. CALCIUM [Concomitant]
  5. BACLOFEN [Concomitant]
  6. FOSAMAX [Concomitant]
  7. CLINDA-SAAR [Concomitant]
  8. NOVALDIN INJ [Concomitant]

REACTIONS (6)
  - APNOEA [None]
  - BRADYCARDIA [None]
  - CONSCIOUSNESS FLUCTUATING [None]
  - CONVULSION [None]
  - DRUG TOXICITY [None]
  - LOSS OF CONSCIOUSNESS [None]
